FAERS Safety Report 9068874 (Version 1)
Quarter: 2013Q1

REPORT INFORMATION
  Report Type: Spontaneous
  Country: BR (occurrence: BR)
  Receive Date: 20130128
  Receipt Date: 20130128
  Transmission Date: 20140127
  Serious: Yes (Death, Other)
  Sender: FDA-Public Use
  Company Number: PHHY2010BR74163

PATIENT
  Age: 82 Year
  Sex: Female

DRUGS (2)
  1. GALVUS [Suspect]
     Dosage: UNK UKN, UNK
  2. DIOVAN [Suspect]
     Indication: HYPERTENSION
     Dosage: 320 MG, DAILY

REACTIONS (4)
  - Neoplasm malignant [Fatal]
  - Blood pressure fluctuation [Recovered/Resolved]
  - Hypertension [Recovered/Resolved]
  - Blood pressure inadequately controlled [Recovered/Resolved]
